FAERS Safety Report 20699326 (Version 1)
Quarter: 2022Q2

REPORT INFORMATION
  Report Type: Spontaneous
  Country: US (occurrence: US)
  Receive Date: 20220412
  Receipt Date: 20220412
  Transmission Date: 20220720
  Serious: No
  Sender: FDA-Public Use
  Company Number: US-ELI_LILLY_AND_COMPANY-US202204004973

PATIENT
  Sex: Female

DRUGS (2)
  1. CYRAMZA [Suspect]
     Active Substance: RAMUCIRUMAB
     Indication: Pancreatic carcinoma
     Dosage: 10 MG, UNKNOWN
     Route: 042
     Dates: start: 20220405
  2. CYRAMZA [Suspect]
     Active Substance: RAMUCIRUMAB
     Dosage: 10 MG, UNKNOWN
     Route: 042

REACTIONS (2)
  - Rash [Unknown]
  - Off label use [Unknown]

NARRATIVE: CASE EVENT DATE: 20220405
